FAERS Safety Report 23332655 (Version 2)
Quarter: 2024Q1

REPORT INFORMATION
  Report Type: Spontaneous
  Country: US (occurrence: US)
  Receive Date: 20231222
  Receipt Date: 20240206
  Transmission Date: 20240409
  Serious: Yes (Other)
  Sender: FDA-Public Use
  Company Number: US-BAYER-2023A178209

PATIENT
  Age: 16 Year
  Sex: Male

DRUGS (2)
  1. JIVI [Suspect]
     Active Substance: DAMOCTOCOG ALFA PEGOL
     Dosage: UNK, 1500 UNITS/3000 UNITS
  2. JIVI [Suspect]
     Active Substance: DAMOCTOCOG ALFA PEGOL
     Dosage: 3 DF, 1500 UNITS (+/-10%)

REACTIONS (2)
  - Haemorrhage [None]
  - Joint injury [Recovered/Resolved]

NARRATIVE: CASE EVENT DATE: 20231120
